FAERS Safety Report 6310785-5 (Version None)
Quarter: 2009Q3

REPORT INFORMATION
  Report Type: 
  Country: None (occurrence: None)
  Receive Date: 20090812
  Receipt Date: 20090803
  Transmission Date: 20100115
  Serious: Yes (Death, Life-Threatening)
  Sender: FDA-Public Use
  Company Number: 341118

PATIENT
  Age: 33 Year
  Sex: Female
  Weight: 100 kg

DRUGS (1)
  1. VECURONIUM BROMIDE [Suspect]
     Indication: DRUG USE FOR UNKNOWN INDICATION
     Dosage: 10 MG
     Dates: start: 20090729

REACTIONS (2)
  - DYSPNOEA [None]
  - OVERDOSE [None]
